FAERS Safety Report 7191311-8 (Version None)
Quarter: 2010Q4

REPORT INFORMATION
  Report Type: 
  Country: None (occurrence: None)
  Receive Date: 20101223
  Receipt Date: 20101208
  Transmission Date: 20110411
  Serious: Yes (Other)
  Sender: FDA-Public Use
  Company Number: US-ROCHE-727265

PATIENT
  Sex: Female
  Weight: 41.7 kg

DRUGS (5)
  1. ACCUTANE [Suspect]
     Indication: ACNE
     Route: 065
     Dates: start: 19970922, end: 19980227
  2. PREDNISONE [Concomitant]
     Dosage: DOSE DECREASED TO 20.
     Dates: start: 20101109
  3. PREDNISONE [Concomitant]
     Dosage: 20 BID
     Dates: start: 20071113
  4. MERCAPTOPURINE [Concomitant]
     Dosage: DRUG WAS RESTARTED WITH 1AND HALF TAB.
     Dates: start: 20101109
  5. MERCAPTOPURINE [Concomitant]
     Dates: start: 20101113

REACTIONS (4)
  - COLITIS ULCERATIVE [None]
  - DEPRESSION [None]
  - GASTROINTESTINAL INJURY [None]
  - IRRITABLE BOWEL SYNDROME [None]
